FAERS Safety Report 6689150-7 (Version None)
Quarter: 2010Q2

REPORT INFORMATION
  Report Type: 
  Country: None (occurrence: None)
  Receive Date: 20100420
  Receipt Date: 20100407
  Transmission Date: 20101027
  Serious: Yes (Hospitalization)
  Sender: FDA-Public Use
  Company Number: IT-BAYER-201021217GPV

PATIENT
  Age: 75 Year
  Sex: Female

DRUGS (2)
  1. ASPIRIN [Suspect]
     Indication: ENCEPHALOPATHY
     Route: 048
     Dates: start: 20091201, end: 20100324
  2. ALENDRONATE SODIUM [Suspect]
     Indication: OSTEOPOROSIS
     Route: 048
     Dates: start: 20010101, end: 20100324

REACTIONS (2)
  - HAEMATEMESIS [None]
  - MALLORY-WEISS SYNDROME [None]
